FAERS Safety Report 4351032-3 (Version None)
Quarter: 2004Q2

REPORT INFORMATION
  Report Type: 
  Country: None (occurrence: None)
  Receive Date: 20040428
  Receipt Date: 20030519
  Transmission Date: 20050107
  Serious: Yes (Other)
  Sender: FDA-Public Use
  Company Number: 338390

PATIENT
  Age: 78 Year
  Sex: Male

DRUGS (2)
  1. NAPROXEN [Suspect]
     Indication: EXOSTOSIS
     Dosage: ORAL
     Route: 048
     Dates: start: 19950615, end: 20010616
  2. SYNTHROID [Concomitant]

REACTIONS (3)
  - ABDOMINAL PAIN UPPER [None]
  - GASTRIC ULCER [None]
  - ULCER [None]
